FAERS Safety Report 9554627 (Version 2)
Quarter: 2013Q4

REPORT INFORMATION
  Report Type: Spontaneous
  Country: US (occurrence: US)
  Receive Date: 20130925
  Receipt Date: 20131003
  Transmission Date: 20140711
  Serious: Yes (Hospitalization)
  Sender: FDA-Public Use
  Company Number: US-BAXTER-2013BAX036712

PATIENT
  Age: 56 Year
  Sex: Male

DRUGS (10)
  1. DIANEAL LOW CALCIUM [Suspect]
     Indication: PERITONEAL DIALYSIS
     Route: 033
  2. DIANEAL LOW CALCIUM [Suspect]
     Route: 033
     Dates: start: 20130910
  3. DIANEAL LOW CALCIUM [Suspect]
     Indication: PERITONEAL DIALYSIS
     Route: 033
     Dates: start: 20120222
  4. DIANEAL LOW CALCIUM [Suspect]
     Dosage: LAST FILL 2000, 2 MANUALS DURING DAY
     Route: 033
     Dates: start: 20120222
  5. DIANEAL LOW CALCIUM [Suspect]
     Route: 033
     Dates: start: 20130910
  6. DIANEAL LOW CALCIUM [Suspect]
     Route: 033
     Dates: start: 20130910
  7. DIANEAL LOW CALCIUM (ULTRABAG) [Suspect]
     Indication: PERITONEAL DIALYSIS
     Route: 033
  8. DIANEAL LOW CALCIUM (ULTRABAG) [Suspect]
     Route: 033
     Dates: start: 20130910
  9. DIANEAL LOW CALCIUM (ULTRABAG) [Suspect]
     Indication: PERITONEAL DIALYSIS
     Route: 033
  10. DIANEAL LOW CALCIUM (ULTRABAG) [Suspect]
     Dosage: 2 BAGS
     Route: 033
     Dates: start: 20130910

REACTIONS (1)
  - Cholecystitis [Recovered/Resolved]
